FAERS Safety Report 15570835 (Version 1)
Quarter: 2018Q4

REPORT INFORMATION
  Report Type: Report from Study
  Country: BR (occurrence: BR)
  Receive Date: 20181031
  Receipt Date: 20181031
  Transmission Date: 20190205
  Serious: Yes (Other)
  Sender: FDA-Public Use
  Company Number: BR-TEVA-2018-BR-970031

PATIENT
  Sex: Female

DRUGS (4)
  1. NAPROXEN 500 MG [Concomitant]
     Active Substance: NAPROXEN
     Dosage: WHEN PAIN.
  2. DIPYRONE [Concomitant]
     Active Substance: DIPYRONE
     Dosage: WHEN PAIN.
  3. COPAXONE [Suspect]
     Active Substance: GLATIRAMER ACETATE
     Route: 065
     Dates: start: 20181006
  4. COPAXONE [Suspect]
     Active Substance: GLATIRAMER ACETATE
     Indication: MULTIPLE SCLEROSIS
     Dosage: 20 MILLIGRAM/MILLILITERS DAILY;
     Route: 065
     Dates: start: 20180302, end: 20180904

REACTIONS (4)
  - Ectopic pregnancy [Unknown]
  - Abortion induced [Unknown]
  - Haemorrhage [Unknown]
  - Maternal exposure during pregnancy [Unknown]

NARRATIVE: CASE EVENT DATE: 2018
